FAERS Safety Report 8829718 (Version 1)
Quarter: 2012Q4

REPORT INFORMATION
  Report Type: 
  Country: US (occurrence: US)
  Receive Date: 20121008
  Receipt Date: 20121008
  Transmission Date: 20130627
  Serious: Yes (Death)
  Sender: FDA-Public Use
  Company Number: US-ROCHE-1130644

PATIENT
  Age: 58 Year
  Sex: Male
  Weight: 82.17 kg

DRUGS (12)
  1. RITUXAN [Suspect]
     Indication: CHRONIC LYMPHOCYTIC LEUKAEMIA
     Dosage: started therapy
     Route: 065
     Dates: start: 20010207
  2. RITUXAN [Suspect]
     Route: 065
     Dates: start: 20020227
  3. TYLENOL [Concomitant]
     Route: 065
     Dates: start: 20010207
  4. BENADRYL [Concomitant]
     Route: 065
     Dates: start: 20010207
  5. ZOFRAN [Concomitant]
     Route: 065
     Dates: start: 20010207
  6. DECADRON [Concomitant]
     Route: 065
     Dates: start: 20010207
  7. FLUDARABINE [Concomitant]
     Route: 065
     Dates: start: 20010207
  8. CYTOXAN [Concomitant]
     Route: 065
     Dates: start: 20010207
  9. VALTREX [Concomitant]
     Route: 065
  10. BACTRIM [Concomitant]
     Route: 065
  11. PROCRIT [Concomitant]
     Route: 065
  12. DOXEPIN [Concomitant]
     Route: 065

REACTIONS (8)
  - Death [Fatal]
  - Pyrexia [Recovered/Resolved]
  - Upper-airway cough syndrome [Unknown]
  - Nocturia [Unknown]
  - White blood cell count decreased [Unknown]
  - Chills [Unknown]
  - Fatigue [Unknown]
  - Lymphadenopathy [Recovered/Resolved]
